FAERS Safety Report 20005315 (Version 2)
Quarter: 2021Q4

REPORT INFORMATION
  Report Type: Report from Study
  Country: CA (occurrence: CA)
  Receive Date: 20211027
  Receipt Date: 20211112
  Transmission Date: 20220303
  Serious: Yes (Hospitalization)
  Sender: FDA-Public Use
  Company Number: CA-SEATTLE GENETICS-2021SGN05420

PATIENT
  Age: 42 Year
  Sex: Female
  Weight: 72 kg

DRUGS (9)
  1. TUCATINIB [Suspect]
     Active Substance: TUCATINIB
     Indication: HER2 positive breast cancer
     Dosage: 300 MG, BID
     Route: 048
     Dates: start: 20210805, end: 20211006
  2. ADO-TRASTUZUMAB EMTANSINE [Suspect]
     Active Substance: ADO-TRASTUZUMAB EMTANSINE
     Indication: HER2 positive breast cancer
     Dosage: 3.6 MG/KG, Q3WEEKS
     Route: 042
     Dates: start: 20210805, end: 20211007
  3. MORPHINE [Concomitant]
     Active Substance: MORPHINE
     Indication: Kidney infection
     Dosage: 5 MG PRN
     Route: 048
     Dates: start: 20210928
  4. KEPPRA XR [Concomitant]
     Active Substance: LEVETIRACETAM
     Indication: Epilepsy
     Dosage: 750 MG, BID
     Route: 048
     Dates: start: 20210221
  5. ZOMETA [Concomitant]
     Active Substance: ZOLEDRONIC ACID
     Indication: Metastases to bone
     Dosage: UNK
     Dates: start: 20180117
  6. PANTOPRAZOLE SODIUM [Concomitant]
     Active Substance: PANTOPRAZOLE SODIUM
     Indication: Prophylaxis against gastrointestinal ulcer
     Dosage: 40 MG, BID
     Route: 048
     Dates: start: 2017
  7. CELEBREX [Concomitant]
     Active Substance: CELECOXIB
     Indication: Abdominal pain
     Dosage: 100 MG, BID
     Dates: start: 2021
  8. TYLENOL [Concomitant]
     Active Substance: ACETAMINOPHEN
     Indication: Abdominal pain
     Dosage: 1000 MG, Q4HR PRN
     Route: 048
     Dates: start: 2021
  9. APIXABAN [Concomitant]
     Active Substance: APIXABAN
     Indication: Phlebitis
     Dosage: 5 MG, BID
     Route: 048
     Dates: start: 202103

REACTIONS (1)
  - Tumour associated fever [Recovered/Resolved]

NARRATIVE: CASE EVENT DATE: 20211020
